FAERS Safety Report 13646448 (Version 2)
Quarter: 2017Q3

REPORT INFORMATION
  Report Type: Report from Study
  Country: FR (occurrence: FR)
  Receive Date: 20170613
  Receipt Date: 20170713
  Transmission Date: 20171127
  Serious: Yes (Other)
  Sender: FDA-Public Use
  Company Number: FR-ROCHE-1946691

PATIENT
  Age: 59 Year
  Sex: Male
  Weight: 71 kg

DRUGS (2)
  1. AMOXICILLIN. [Concomitant]
     Active Substance: AMOXICILLIN
     Route: 048
     Dates: start: 201109
  2. VEMURAFENIB. [Suspect]
     Active Substance: VEMURAFENIB
     Indication: NEOPLASM MALIGNANT
     Dosage: DATE OF LAST DOSE ADMINISTERED PRIOR TO THE SAE: 26/MAY/2017, DOSE: 480 MG?CUMULATIVE DOSE RECEIVED
     Route: 048
     Dates: start: 20170510

REACTIONS (2)
  - Leukopenia [Recovered/Resolved]
  - Neutropenia [Recovered/Resolved]

NARRATIVE: CASE EVENT DATE: 20170526
